FAERS Safety Report 25175965 (Version 1)
Quarter: 2025Q2

REPORT INFORMATION
  Report Type: Spontaneous
  Country: FR (occurrence: FR)
  Receive Date: 20250409
  Receipt Date: 20250409
  Transmission Date: 20250717
  Serious: Yes (Other)
  Sender: NOVO NORDISK
  Company Number: FR-NOVOPROD-1376696

PATIENT
  Age: 75 Year
  Sex: Female
  Weight: 86 kg

DRUGS (3)
  1. WEGOVY [Suspect]
     Active Substance: SEMAGLUTIDE
  2. WEGOVY [Suspect]
     Active Substance: SEMAGLUTIDE
     Indication: Obesity
     Dates: start: 20241121
  3. WEGOVY [Suspect]
     Active Substance: SEMAGLUTIDE
     Dates: end: 20250214

REACTIONS (2)
  - Negative thoughts [Recovered/Resolved]
  - Anxiety [Recovered/Resolved]
